FAERS Safety Report 4759556-1 (Version None)
Quarter: 2005Q3

REPORT INFORMATION
  Report Type: 
  Country: None (occurrence: None)
  Receive Date: 20050901
  Receipt Date: 20050105
  Transmission Date: 20060218
  Serious: Yes (Hospitalization, Disabling)
  Sender: FDA-Public Use
  Company Number: US-MERCK-0501USA00415

PATIENT
  Age: 46 Year
  Sex: Female
  Weight: 82 kg

DRUGS (2)
  1. VIOXX [Suspect]
     Indication: INTERVERTEBRAL DISC PROTRUSION
     Route: 048
     Dates: start: 19990101, end: 20040901
  2. ATENOLOL [Concomitant]
     Route: 065

REACTIONS (16)
  - ADJUSTMENT DISORDER [None]
  - BLINDNESS [None]
  - BRAIN DAMAGE [None]
  - CEREBROVASCULAR ACCIDENT [None]
  - CLOSTRIDIAL INFECTION [None]
  - COLITIS [None]
  - DEAFNESS [None]
  - DEPRESSION [None]
  - EYE DISORDER [None]
  - FALL [None]
  - FRACTURE DISPLACEMENT [None]
  - HYPERTENSION [None]
  - LOSS OF CONSCIOUSNESS [None]
  - OSTEOARTHRITIS [None]
  - PNEUMONIA [None]
  - TRAUMATIC BRAIN INJURY [None]
